FAERS Safety Report 11929430 (Version 1)
Quarter: 2016Q1

REPORT INFORMATION
  Report Type: Spontaneous
  Country: US (occurrence: None)
  Receive Date: 20160119
  Receipt Date: 20160119
  Transmission Date: 20160526
  Serious: No
  Sender: FDA-Public Use
  Company Number: None

PATIENT
  Age: 29 Year

DRUGS (1)
  1. APRISO [Suspect]
     Active Substance: MESALAMINE
     Indication: COLITIS ULCERATIVE
     Dosage: OVER A YEAR (?)
     Route: 048

REACTIONS (2)
  - Reaction to colouring [None]
  - Product label confusion [None]

NARRATIVE: CASE EVENT DATE: 20150730
